FAERS Safety Report 7653625-4 (Version None)
Quarter: 2011Q3

REPORT INFORMATION
  Report Type: 
  Country: None (occurrence: None)
  Receive Date: 20110803
  Receipt Date: 20110803
  Transmission Date: 20111222
  Serious: Yes (Life-Threatening, Hospitalization, Other)
  Sender: FDA-Public Use
  Company Number: None

PATIENT
  Age: 68 Year
  Sex: Male
  Weight: 106.59 kg

DRUGS (1)
  1. BACTRIM [Suspect]
     Indication: EYE INFECTION
     Route: 048
     Dates: start: 20110720, end: 20110730

REACTIONS (2)
  - ORAL CANDIDIASIS [None]
  - STEVENS-JOHNSON SYNDROME [None]
